FAERS Safety Report 4437992-0 (Version None)
Quarter: 2004Q3

REPORT INFORMATION
  Report Type: 
  Country: None (occurrence: None)
  Receive Date: 20040831
  Receipt Date: 20040412
  Transmission Date: 20050211
  Serious: Yes (Hospitalization, Other)
  Sender: FDA-Public Use
  Company Number: US-GLAXOSMITHKLINE-A0506849A

PATIENT
  Age: 59 Year
  Sex: Female
  Weight: 69.1 kg

DRUGS (8)
  1. WELLBUTRIN [Suspect]
     Indication: DEPRESSION
     Dosage: 300MG PER DAY
     Route: 048
     Dates: start: 20031029, end: 20040402
  2. INSULIN [Concomitant]
  3. ALTACE [Concomitant]
     Dosage: 5MG PER DAY
  4. SYNTHROID [Concomitant]
     Dosage: 150MCG PER DAY
  5. ATENOLOL [Concomitant]
     Dosage: 25MG PER DAY
  6. DILTIAZEM HCL [Concomitant]
     Dosage: 180MG PER DAY
  7. IMDUR [Concomitant]
     Dosage: 60MG PER DAY
  8. ASPIRIN [Concomitant]

REACTIONS (2)
  - AMNESIA [None]
  - CONVULSION [None]
